FAERS Safety Report 21328858 (Version 5)
Quarter: 2023Q1

REPORT INFORMATION
  Report Type: Spontaneous
  Country: US (occurrence: US)
  Receive Date: 20220913
  Receipt Date: 20230314
  Transmission Date: 20230417
  Serious: Yes (Hospitalization, Other)
  Sender: FDA-Public Use
  Company Number: US-PFIZER INC-PV202200061216

PATIENT
  Age: 67 Year
  Sex: Female

DRUGS (1)
  1. INLYTA [Suspect]
     Active Substance: AXITINIB
     Dosage: UNK

REACTIONS (12)
  - Cerebrovascular accident [Unknown]
  - Ankle fracture [Unknown]
  - Fall [Unknown]
  - Meningitis [Unknown]
  - Product dose omission issue [Unknown]
  - Product dose omission in error [Unknown]
  - Fatigue [Recovered/Resolved]
  - Balance disorder [Unknown]
  - COVID-19 [Unknown]
  - Inner ear disorder [Unknown]
  - Insomnia [Unknown]
  - Decreased appetite [Unknown]

NARRATIVE: CASE EVENT DATE: 20220801
